FAERS Safety Report 10870333 (Version 4)
Quarter: 2019Q2

REPORT INFORMATION
  Report Type: Spontaneous
  Country: GR (occurrence: GR)
  Receive Date: 20150226
  Receipt Date: 20190611
  Transmission Date: 20190711
  Serious: Yes (Hospitalization, Other)
  Sender: FDA-Public Use
  Company Number: PHHY2015GR018763

PATIENT

DRUGS (4)
  1. CLARITHROMYCIN. [Interacting]
     Active Substance: CLARITHROMYCIN
     Dosage: 500 MG, Q12H
     Route: 048
  2. QUETIAPINE. [Suspect]
     Active Substance: QUETIAPINE
     Indication: INSOMNIA
     Dosage: 125 MG, QD
     Route: 065
  3. QUETIAPINE. [Suspect]
     Active Substance: QUETIAPINE
     Indication: BEHAVIOUR DISORDER
  4. CLARITHROMYCIN. [Interacting]
     Active Substance: CLARITHROMYCIN
     Indication: PYREXIA
     Dosage: 1000 MG, QD
     Route: 048

REACTIONS (15)
  - Stupor [Recovering/Resolving]
  - Drug interaction [Recovered/Resolved]
  - Muscle rigidity [Recovering/Resolving]
  - Acute kidney injury [Unknown]
  - Dysstasia [Recovering/Resolving]
  - Gait inability [Recovering/Resolving]
  - Electrolyte imbalance [Recovering/Resolving]
  - Neuroleptic malignant syndrome [Recovered/Resolved]
  - Product use in unapproved indication [Unknown]
  - Off label use [Unknown]
  - Pyrexia [Recovering/Resolving]
  - Leukocytosis [Recovering/Resolving]
  - Drug ineffective [Unknown]
  - Altered state of consciousness [Recovering/Resolving]
  - Hyperhidrosis [Recovering/Resolving]
